FAERS Safety Report 23837941 (Version 1)
Quarter: 2024Q2

REPORT INFORMATION
  Report Type: Other
  Country: TZ (occurrence: TZ)
  Receive Date: 20240509
  Receipt Date: 20240509
  Transmission Date: 20240716
  Serious: Yes (Other)
  Sender: FDA-Public Use
  Company Number: TZ-Avondale Pharmaceuticals, LLC-2156768

PATIENT
  Age: 63 Year
  Sex: Male

DRUGS (6)
  1. MOBIC [Suspect]
     Active Substance: MELOXICAM
     Indication: Pain
     Route: 065
  2. DICLOFENAC [Suspect]
     Active Substance: DICLOFENAC
     Route: 065
  3. PREGABALIN [Suspect]
     Active Substance: PREGABALIN
     Route: 065
  4. MORPHINE SULFATE [Suspect]
     Active Substance: MORPHINE SULFATE
     Route: 065
  5. TRAMADOL [Suspect]
     Active Substance: TRAMADOL\TRAMADOL HYDROCHLORIDE
     Route: 065
  6. MEPERIDINE [Suspect]
     Active Substance: MEPERIDINE
     Route: 065

REACTIONS (1)
  - Drug ineffective [Unknown]
